FAERS Safety Report 18145031 (Version 3)
Quarter: 2020Q3

REPORT INFORMATION
  Report Type: Report from Study
  Country: US (occurrence: US)
  Receive Date: 20200813
  Receipt Date: 20200828
  Transmission Date: 20201103
  Serious: Yes (Death)
  Sender: FDA-Public Use
  Company Number: NVSC2020US223307

PATIENT
  Sex: Male

DRUGS (2)
  1. ENTRESTO [Suspect]
     Active Substance: SACUBITRIL\VALSARTAN
     Indication: CARDIAC FAILURE
     Dosage: UNK UNK, BID
     Route: 048
  2. ENTRESTO [Suspect]
     Active Substance: SACUBITRIL\VALSARTAN
     Dosage: 200 MG, BID (97/103)
     Route: 048

REACTIONS (8)
  - Myalgia [Unknown]
  - Blood pressure abnormal [Unknown]
  - Fatigue [Unknown]
  - Hyperhidrosis [Unknown]
  - Weight decreased [Unknown]
  - Nausea [Unknown]
  - Death [Fatal]
  - Vomiting [Unknown]
